FAERS Safety Report 4874868-9 (Version None)
Quarter: 2006Q1

REPORT INFORMATION
  Report Type: 
  Country: None (occurrence: None)
  Receive Date: 20060104
  Receipt Date: 20051222
  Transmission Date: 20060701
  Serious: Yes (Life-Threatening, Hospitalization, Other)
  Sender: FDA-Public Use
  Company Number: 2005172107

PATIENT
  Age: 74 Year
  Sex: Male
  Weight: 62 kg

DRUGS (5)
  1. PHENYTOIN [Suspect]
     Indication: CONVULSION
     Dosage: (950 MG) INTRAVENOUS
     Route: 042
     Dates: start: 20051115, end: 20051115
  2. CHLORAMPHENICOL [Concomitant]
  3. PARACETAMOL (PARACETAMOL) [Concomitant]
  4. DOXAZOSIN (DOXAZOSIN) [Concomitant]
  5. ATENOLOL [Concomitant]

REACTIONS (3)
  - BLOOD PRESSURE DECREASED [None]
  - BRADYCARDIA [None]
  - RESPIRATORY ARREST [None]
